FAERS Safety Report 19359764 (Version 1)
Quarter: 2021Q2

REPORT INFORMATION
  Report Type: Spontaneous
  Country: US (occurrence: US)
  Receive Date: 20210601
  Receipt Date: 20210601
  Transmission Date: 20210717
  Serious: No
  Sender: FDA-Public Use
  Company Number: US-009507513-2105USA002476

PATIENT
  Age: 22 Year
  Sex: Male

DRUGS (2)
  1. NOXAFIL [Suspect]
     Active Substance: POSACONAZOLE
     Indication: SINUSITIS FUNGAL
     Dosage: UNK
     Route: 048
  2. ITRACONAZOLE. [Suspect]
     Active Substance: ITRACONAZOLE
     Indication: SINUSITIS FUNGAL
     Dosage: UNK
     Route: 048

REACTIONS (2)
  - Treatment noncompliance [Unknown]
  - Off label use [Unknown]
